FAERS Safety Report 4764812-7 (Version None)
Quarter: 2005Q3

REPORT INFORMATION
  Report Type: 
  Country: None (occurrence: None)
  Receive Date: 20050907
  Receipt Date: 20050829
  Transmission Date: 20060218
  Serious: Yes (Death)
  Sender: FDA-Public Use
  Company Number: 2005113496

PATIENT
  Age: 72 Year
  Sex: Male
  Weight: 90.7194 kg

DRUGS (6)
  1. NORVASC [Suspect]
     Indication: HYPERTENSION
     Dosage: 5 MG (5 MG, 1 IN 1 D), ORAL
     Route: 048
     Dates: start: 20050117, end: 20050613
  2. TENORETIC 100 [Suspect]
     Indication: HYPERTENSION
     Dosage: 100 /25 (1 IN 1 D), ORAL
     Route: 048
     Dates: start: 20040727
  3. PEPPCID (FAMOTIDINE) [Concomitant]
  4. ECOTRIN (ACETYLSALICYLIC ACID0 [Concomitant]
  5. ASPIRIN [Concomitant]
  6. LEVITRA [Concomitant]

REACTIONS (4)
  - CARDIAC DISORDER [None]
  - ERECTILE DYSFUNCTION [None]
  - MYOCARDIAL INFARCTION [None]
  - REFUSAL OF TREATMENT BY PATIENT [None]
